FAERS Safety Report 6547214-2 (Version None)
Quarter: 2010Q1

REPORT INFORMATION
  Report Type: 
  Country: None (occurrence: None)
  Receive Date: 20100122
  Receipt Date: 20100111
  Transmission Date: 20100710
  Serious: Yes (Hospitalization)
  Sender: FDA-Public Use
  Company Number: US-JNJFOC-20100103611

PATIENT
  Sex: Female
  Weight: 40.4 kg

DRUGS (6)
  1. REMICADE [Suspect]
     Indication: INFLAMMATORY BOWEL DISEASE
     Route: 042
  2. REMICADE [Suspect]
     Route: 042
  3. 5-ASA [Concomitant]
     Route: 048
  4. METHOTREXATE [Concomitant]
  5. PREDNISONE TAB [Concomitant]
  6. METRONIDAZOLE [Concomitant]

REACTIONS (1)
  - CROHN'S DISEASE [None]
